FAERS Safety Report 5000512-6 (Version None)
Quarter: 2006Q2

REPORT INFORMATION
  Report Type: 
  Country: None (occurrence: None)
  Receive Date: 20060512
  Receipt Date: 20060510
  Transmission Date: 20061013
  Serious: Yes (Death, Other)
  Sender: FDA-Public Use
  Company Number: PHBS2006ES06887

PATIENT
  Age: 78 Year
  Sex: Female

DRUGS (2)
  1. TEGRETOL [Suspect]
     Dosage: 200 MG/D
     Route: 048
     Dates: end: 20060301
  2. CLOZAPINE [Suspect]
     Indication: VASCULAR DEMENTIA
     Dosage: 100 MG/D
     Route: 048
     Dates: start: 20060301

REACTIONS (2)
  - CONVULSION [None]
  - DEATH [None]
